FAERS Safety Report 8370845-4 (Version None)
Quarter: 2012Q2

REPORT INFORMATION
  Report Type: 
  Country: None (occurrence: None)
  Receive Date: 20120518
  Receipt Date: 20110520
  Transmission Date: 20120825
  Serious: No
  Sender: FDA-Public Use
  Company Number: US-ASTRAZENECA-2011SE41402

PATIENT
  Sex: Male

DRUGS (2)
  1. ALLERGY MEDICATION [Concomitant]
     Dosage: UNKNOWN
  2. PRILOSEC OTC [Suspect]
     Route: 048
     Dates: start: 20110516, end: 20110519

REACTIONS (4)
  - DERMATITIS [None]
  - URTICARIA [None]
  - BLISTER [None]
  - RASH GENERALISED [None]
